FAERS Safety Report 22755539 (Version 3)
Quarter: 2024Q4

REPORT INFORMATION
  Report Type: Spontaneous
  Country: AU (occurrence: AU)
  Receive Date: 20230727
  Receipt Date: 20241018
  Transmission Date: 20250115
  Serious: Yes (Death, Hospitalization, Other)
  Sender: Haleon PLC
  Company Number: AU-SANDOZ-SDZ2023AU002913

PATIENT
  Sex: Male

DRUGS (7)
  1. TERBINAFINE [Suspect]
     Active Substance: TERBINAFINE\TERBINAFINE HYDROCHLORIDE
     Indication: Fungal infection
     Dosage: UNK
  2. ISAVUCONAZOLE [Suspect]
     Active Substance: ISAVUCONAZOLE
     Indication: Fungal infection
     Dosage: UNK (UNK, HIGH DOSE)
  3. POSACONAZOLE [Suspect]
     Active Substance: POSACONAZOLE
     Indication: Fungal infection
     Dosage: 500 MG, BID  (300 MG AT MORNING AND 200 MG AT NIGHT)
  4. POSACONAZOLE [Suspect]
     Active Substance: POSACONAZOLE
     Indication: Antifungal prophylaxis
  5. ANIDULAFUNGIN [Suspect]
     Active Substance: ANIDULAFUNGIN
     Indication: Fungal infection
     Dosage: 100 MG, QD
  6. AMPHOTERICIN B [Suspect]
     Active Substance: AMPHOTERICIN B
     Indication: Antifungal prophylaxis
     Dosage: 5 MG/KG, QD
  7. AMPHOTERICIN B [Suspect]
     Active Substance: AMPHOTERICIN B
     Indication: Fungal infection

REACTIONS (2)
  - Infection [Fatal]
  - Drug ineffective [Fatal]
